FAERS Safety Report 20920317 (Version 1)
Quarter: 2022Q2

REPORT INFORMATION
  Report Type: Spontaneous
  Country: US (occurrence: None)
  Receive Date: 20220606
  Receipt Date: 20220606
  Transmission Date: 20220721
  Serious: Yes (Life-Threatening, Hospitalization)
  Sender: FDA-Public Use
  Company Number: None

PATIENT
  Age: 91 Year
  Sex: Male
  Weight: 69 kg

DRUGS (1)
  1. OXCARBAZEPINE [Suspect]
     Active Substance: OXCARBAZEPINE
     Indication: Pain
     Dosage: 600 MG BID PO?
     Route: 048
     Dates: start: 20190913

REACTIONS (4)
  - Fall [None]
  - Hyponatraemia [None]
  - Therapy interrupted [None]
  - Lethargy [None]

NARRATIVE: CASE EVENT DATE: 20220425
